FAERS Safety Report 9656863 (Version 1)
Quarter: 2013Q4

REPORT INFORMATION
  Report Type: Report from Study
  Country: US (occurrence: US)
  Receive Date: 20131030
  Receipt Date: 20131030
  Transmission Date: 20140711
  Serious: Yes (Other)
  Sender: FDA-Public Use
  Company Number: US-BAXTER-2013BAX042064

PATIENT
  Sex: 0

DRUGS (6)
  1. IFEX (IFOSFAMIDE FOR INJECTION, USP) [Suspect]
     Indication: LYMPHOMA
     Dosage: 5 G/M2
     Route: 042
  2. MESNA FOR INJECTION 1 GRAM [Suspect]
     Indication: LYMPHOMA
     Dosage: 5 G/M2
     Route: 042
  3. OFATUMUMAB [Suspect]
     Indication: LYMPHOMA
     Route: 065
  4. OFATUMUMAB [Suspect]
     Route: 065
  5. ETOPOSIDE [Suspect]
     Indication: LYMPHOMA
     Route: 042
  6. CARBOPLATIN [Suspect]
     Indication: LYMPHOMA
     Route: 042

REACTIONS (1)
  - Neurotoxicity [Unknown]
